FAERS Safety Report 9773428 (Version 1)
Quarter: 2013Q4

REPORT INFORMATION
  Report Type: Report from Study
  Country: BR (occurrence: BR)
  Receive Date: 20131219
  Receipt Date: 20131219
  Transmission Date: 20140711
  Serious: Yes (Death, Hospitalization, Other)
  Sender: FDA-Public Use
  Company Number: PHHY2013BR148079

PATIENT
  Age: 76 Year
  Sex: Male
  Weight: 85 kg

DRUGS (1)
  1. EXELON PATCH [Suspect]
     Indication: DEMENTIA ALZHEIMER^S TYPE
     Dosage: 4.6 MG, DAILY
     Route: 062
     Dates: end: 201311

REACTIONS (8)
  - Respiratory tract infection [Fatal]
  - Dementia Alzheimer^s type [Fatal]
  - Lung infection [Fatal]
  - Pyrexia [Fatal]
  - Urine output decreased [Unknown]
  - Blood urine present [Unknown]
  - Vomiting [Unknown]
  - Sepsis [Unknown]
